FAERS Safety Report 19693857 (Version 1)
Quarter: 2021Q3

REPORT INFORMATION
  Report Type: Report from Study
  Country: US (occurrence: US)
  Receive Date: 20210812
  Receipt Date: 20210812
  Transmission Date: 20211014
  Serious: Yes (Hospitalization)
  Sender: FDA-Public Use
  Company Number: US-EISAI MEDICAL RESEARCH-EC-2021-097568

PATIENT
  Age: 60 Year
  Sex: Male

DRUGS (1)
  1. LENVIMA [Suspect]
     Active Substance: LENVATINIB
     Indication: RENAL CANCER
     Route: 048
     Dates: start: 20210722, end: 20210727

REACTIONS (2)
  - Tumour haemorrhage [Unknown]
  - Ureteric obstruction [Unknown]

NARRATIVE: CASE EVENT DATE: 202107
